FAERS Safety Report 5978971-1 (Version None)
Quarter: 2008Q4

REPORT INFORMATION
  Report Type: 
  Country: None (occurrence: None)
  Receive Date: 20081204
  Receipt Date: 20080207
  Transmission Date: 20090506
  Serious: No
  Sender: FDA-Public Use
  Company Number: US-ABBOTT-08P-163-0437602-00

PATIENT
  Sex: Female
  Weight: 68.1 kg

DRUGS (2)
  1. TRICOR [Suspect]
     Indication: BLOOD CHOLESTEROL INCREASED
     Route: 048
     Dates: start: 20071201
  2. TRICOR [Suspect]
     Indication: BLOOD TRIGLYCERIDES

REACTIONS (1)
  - INCREASED APPETITE [None]
